FAERS Safety Report 26082032 (Version 2)
Quarter: 2025Q4

REPORT INFORMATION
  Report Type: Spontaneous
  Country: US (occurrence: US)
  Receive Date: 20251124
  Receipt Date: 20251202
  Transmission Date: 20260118
  Serious: No
  Sender: MYLAN
  Company Number: US-MYLANLABS-2025M1097079

PATIENT
  Sex: Female
  Weight: 77.11 kg

DRUGS (4)
  1. XANAX [Suspect]
     Active Substance: ALPRAZOLAM
     Indication: Attention deficit hyperactivity disorder
     Dosage: 2 MILLIGRAM, QD (FOUR TABLETS A DAY)
  2. XANAX [Suspect]
     Active Substance: ALPRAZOLAM
     Dosage: 2 MILLIGRAM, QD (FOUR TABLETS A DAY)
     Route: 065
  3. XANAX [Suspect]
     Active Substance: ALPRAZOLAM
     Dosage: 2 MILLIGRAM, QD (FOUR TABLETS A DAY)
     Route: 065
  4. XANAX [Suspect]
     Active Substance: ALPRAZOLAM
     Dosage: 2 MILLIGRAM, QD (FOUR TABLETS A DAY)

REACTIONS (6)
  - Fungal infection [Not Recovered/Not Resolved]
  - Pruritus [Not Recovered/Not Resolved]
  - Product use in unapproved indication [Unknown]
  - Drug ineffective [Unknown]
  - Product substitution issue [Unknown]
  - Product colour issue [Unknown]
